FAERS Safety Report 25012074 (Version 1)
Quarter: 2025Q1

REPORT INFORMATION
  Report Type: Report from Study
  Country: US (occurrence: US)
  Receive Date: 20250226
  Receipt Date: 20250226
  Transmission Date: 20250409
  Serious: Yes (Other)
  Sender: GILEAD
  Company Number: US-GILEAD-2025-0702876

PATIENT
  Age: 44 Year
  Sex: Female

DRUGS (4)
  1. AMBRISENTAN [Suspect]
     Active Substance: AMBRISENTAN
     Indication: Pulmonary arterial hypertension
     Dosage: 10 MG, QD
     Route: 065
     Dates: start: 202304
  2. REMODULIN [Suspect]
     Active Substance: TREPROSTINIL
     Indication: Pulmonary arterial hypertension
     Route: 065
     Dates: start: 202304
  3. REMODULIN [Suspect]
     Active Substance: TREPROSTINIL
     Dosage: 36 ML, Q1MINUTE
     Route: 065
     Dates: start: 202304
  4. REVATIO [Concomitant]
     Active Substance: SILDENAFIL CITRATE
     Indication: Pulmonary arterial hypertension
     Dosage: 40 MG, QD
     Dates: start: 202301

REACTIONS (4)
  - Neuropathy peripheral [Recovered/Resolved]
  - Ill-defined disorder [Unknown]
  - Oxygen saturation abnormal [Unknown]
  - Neuralgia [Recovered/Resolved]
